FAERS Safety Report 25444592 (Version 1)
Quarter: 2025Q2

REPORT INFORMATION
  Report Type: Spontaneous
  Country: TW (occurrence: TW)
  Receive Date: 20250617
  Receipt Date: 20250617
  Transmission Date: 20250716
  Serious: Yes (Death, Other)
  Sender: AMGEN
  Company Number: TW-AMGEN-TWNSP2025115695

PATIENT

DRUGS (2)
  1. CINACALCET HYDROCHLORIDE [Suspect]
     Active Substance: CINACALCET HYDROCHLORIDE
     Indication: Hyperparathyroidism secondary
     Route: 065
  2. ETELCALCETIDE [Suspect]
     Active Substance: ETELCALCETIDE
     Indication: Hyperparathyroidism secondary
     Route: 065

REACTIONS (7)
  - Death [Fatal]
  - Cardiac failure congestive [Unknown]
  - Myocardial ischaemia [Unknown]
  - Arrhythmia [Unknown]
  - Cerebrovascular accident [Unknown]
  - Fracture [Unknown]
  - Hypocalcaemia [Unknown]
